FAERS Safety Report 9537824 (Version 1)
Quarter: 2013Q3

REPORT INFORMATION
  Report Type: Report from Study
  Country: DE (occurrence: DE)
  Receive Date: 20130919
  Receipt Date: 20130919
  Transmission Date: 20140515
  Serious: Yes (Hospitalization, Other)
  Sender: FDA-Public Use
  Company Number: DE-ABBVIE-13P-062-1147675-00

PATIENT
  Sex: Female
  Weight: 65.6 kg

DRUGS (10)
  1. HUMIRA [Suspect]
     Indication: PSORIASIS
     Route: 058
     Dates: start: 20110908
  2. HUMIRA [Suspect]
     Indication: CROHN^S DISEASE
  3. RAMIPRIL [Concomitant]
     Indication: PRODUCT USED FOR UNKNOWN INDICATION
  4. SPIRONOLACTONE [Concomitant]
     Indication: PRODUCT USED FOR UNKNOWN INDICATION
  5. ASA [Concomitant]
     Indication: PRODUCT USED FOR UNKNOWN INDICATION
  6. VALPROAT [Concomitant]
     Indication: PRODUCT USED FOR UNKNOWN INDICATION
  7. L-THYROXIN [Concomitant]
     Indication: PRODUCT USED FOR UNKNOWN INDICATION
  8. NALOXONE/TILIDINE (VALORPON-N) [Concomitant]
     Indication: PRODUCT USED FOR UNKNOWN INDICATION
  9. BUSCOPAN PLUS [Concomitant]
     Indication: PRODUCT USED FOR UNKNOWN INDICATION
  10. DIMENHYDRINATE [Concomitant]
     Indication: PRODUCT USED FOR UNKNOWN INDICATION

REACTIONS (8)
  - Ileus [Recovered/Resolved]
  - Diverticulitis [Recovered/Resolved]
  - Convulsion [Unknown]
  - Subdural haemorrhage [Unknown]
  - Mean cell haemoglobin increased [Unknown]
  - Glomerular filtration rate decreased [Unknown]
  - Mean cell haemoglobin concentration increased [Unknown]
  - Blood creatinine increased [Unknown]
